FAERS Safety Report 9280605 (Version 2)
Quarter: 2013Q4

REPORT INFORMATION
  Report Type: Spontaneous
  Country: US (occurrence: US)
  Receive Date: 20130509
  Receipt Date: 20131031
  Transmission Date: 20140711
  Serious: Yes (Other)
  Sender: FDA-Public Use
  Company Number: US-BAYER-2013-054792

PATIENT
  Age: 39 Year
  Sex: Female
  Weight: 68.03 kg

DRUGS (3)
  1. MIRENA [Suspect]
     Indication: CONTRACEPTION
     Dosage: 20 MCG/24HR, CONT
     Route: 015
     Dates: start: 20090302
  2. HYDROXYZINE [Concomitant]
  3. BUSPAR [Concomitant]

REACTIONS (11)
  - Uterine perforation [None]
  - Injury [None]
  - Fear of death [None]
  - Emotional distress [None]
  - Pelvic pain [None]
  - Abdominal pain upper [None]
  - Vulvovaginal pain [None]
  - Vaginal discharge [None]
  - Weight increased [None]
  - Abdominal distension [None]
  - Device dislocation [None]
